FAERS Safety Report 24273611 (Version 1)
Quarter: 2024Q3

REPORT INFORMATION
  Report Type: Spontaneous
  Country: US (occurrence: US)
  Receive Date: 20240902
  Receipt Date: 20240902
  Transmission Date: 20241017
  Serious: No
  Sender: ASTELLAS
  Company Number: US-ASTELLAS-2024US020134

PATIENT
  Age: 59 Year
  Sex: Male

DRUGS (4)
  1. XTANDI [Suspect]
     Active Substance: ENZALUTAMIDE
     Indication: Prostate cancer
     Dosage: 160 MG, ONCE DAILY
     Route: 065
     Dates: start: 20221223, end: 20230818
  2. XTANDI [Suspect]
     Active Substance: ENZALUTAMIDE
     Dosage: 160 MG, ONCE DAILY
     Route: 065
     Dates: start: 202309
  3. ORGOVYX [Suspect]
     Active Substance: RELUGOLIX
     Indication: Prostate cancer
     Dosage: 360 MG, OTHER (ONE TIME DOSE)
     Route: 048
     Dates: start: 20210716, end: 20210716
  4. ORGOVYX [Suspect]
     Active Substance: RELUGOLIX
     Dosage: 120 MG, ONCE DAILY
     Route: 048
     Dates: start: 20210717

REACTIONS (1)
  - Alopecia [Unknown]
